FAERS Safety Report 25188684 (Version 1)
Quarter: 2025Q2

REPORT INFORMATION
  Report Type: Spontaneous
  Country: US (occurrence: US)
  Receive Date: 20250411
  Receipt Date: 20250411
  Transmission Date: 20250716
  Serious: No
  Sender: NOVITIUM PHARMA
  Company Number: US-NOVITIUMPHARMA-2025USNVP00846

PATIENT
  Age: 4 Month
  Sex: Male
  Weight: 7 kg

DRUGS (1)
  1. FAMOTIDINE [Suspect]
     Active Substance: FAMOTIDINE
     Indication: Gastrooesophageal reflux disease
     Dosage: 40MG/5ML
     Route: 048
     Dates: start: 20250117, end: 20250317

REACTIONS (1)
  - Product use issue [Unknown]
